FAERS Safety Report 12717279 (Version 1)
Quarter: 2016Q3

REPORT INFORMATION
  Report Type: Spontaneous
  Country: US (occurrence: US)
  Receive Date: 20160906
  Receipt Date: 20160906
  Transmission Date: 20161109
  Serious: Yes (Life-Threatening)
  Sender: FDA-Public Use
  Company Number: None

PATIENT
  Age: 58 Year
  Sex: Female
  Weight: 85.05 kg

DRUGS (27)
  1. ABILIFY [Concomitant]
     Active Substance: ARIPIPRAZOLE
  2. ALBUTEROL. [Concomitant]
     Active Substance: ALBUTEROL
  3. AMINOCAPROIC ACID. [Concomitant]
     Active Substance: AMINOCAPROIC ACID
  4. DILAUDID [Concomitant]
     Active Substance: HYDROMORPHONE HYDROCHLORIDE
  5. QUETIAPINE. [Concomitant]
     Active Substance: QUETIAPINE
  6. REQUIP [Concomitant]
     Active Substance: ROPINIROLE HYDROCHLORIDE
  7. REMICADE [Suspect]
     Active Substance: INFLIXIMAB
     Indication: RHEUMATOID ARTHRITIS
     Dosage: OTHER STRENGTH:;OTHER DOSE:;OTHER FREQUENCY:EVERY 8 WEEKS;OTHER ROUTE:CHEST PORT
     Dates: start: 20160501, end: 20160831
  8. SVPAP [Concomitant]
  9. TYLENOL [Concomitant]
     Active Substance: ACETAMINOPHEN
  10. D [Concomitant]
  11. MULTI-VITAMIN [Concomitant]
     Active Substance: .ALPHA.-TOCOPHEROL ACETATE, DL-\ASCORBIC ACID\CYANOCOBALAMIN\FLUORIDE ION\FOLIC ACID\NIACIN\PYRIDOXINE\RIBOFLAVIN\THIAMINE\VITAMIN A\VITAMIN D
  12. ALPRAZOLAM. [Concomitant]
     Active Substance: ALPRAZOLAM
  13. HUMATE-P [Concomitant]
     Active Substance: HUMAN COAGULATION FACTOR VIII/VON WILLEBRAND FACTOR COMPLEX
  14. OXYGEN CONCENTRATOR [Concomitant]
  15. ADDERALL [Concomitant]
     Active Substance: AMPHETAMINE ASPARTATE\AMPHETAMINE SULFATE\DEXTROAMPHETAMINE SACCHARATE\DEXTROAMPHETAMINE SULFATE
  16. DITIAZEM CD [Concomitant]
  17. SPIRIVA [Concomitant]
     Active Substance: TIOTROPIUM BROMIDE MONOHYDRATE
  18. INVOKANA [Concomitant]
     Active Substance: CANAGLIFLOZIN
  19. PRILOSEC [Concomitant]
     Active Substance: OMEPRAZOLE MAGNESIUM
  20. ADVAIR DISK [Concomitant]
  21. VITAMIN B COMPLEX [Concomitant]
     Active Substance: CYANOCOBALAMIN\DEXPANTHENOL\NIACINAMIDE\PYRIDOXINE HYDROCHLORIDE\RIBOFLAVIN 5^-PHOSPHATE SODIUM\THIAMINE HYDROCHLORIDE\VITAMIN B COMPLEX
  22. BIOTIN [Concomitant]
     Active Substance: BIOTIN
  23. LEXAPRO [Concomitant]
     Active Substance: ESCITALOPRAM OXALATE
  24. SINGULAIR [Concomitant]
     Active Substance: MONTELUKAST SODIUM
  25. ZANTAC [Concomitant]
     Active Substance: RANITIDINE HYDROCHLORIDE
  26. LEFLUNOMIDE. [Concomitant]
     Active Substance: LEFLUNOMIDE
  27. E [Concomitant]

REACTIONS (9)
  - Blood pressure abnormal [None]
  - Oxygen saturation decreased [None]
  - Erythema [None]
  - Feeling hot [None]
  - Dyspnoea [None]
  - Wheezing [None]
  - Chest pain [None]
  - Loss of consciousness [None]
  - Chest discomfort [None]

NARRATIVE: CASE EVENT DATE: 20160831
